FAERS Safety Report 6149468-3 (Version None)
Quarter: 2009Q2

REPORT INFORMATION
  Report Type: 
  Country: None (occurrence: None)
  Receive Date: 20090406
  Receipt Date: 20090406
  Transmission Date: 20091009
  Serious: Yes (Hospitalization)
  Sender: FDA-Public Use
  Company Number: None

PATIENT
  Age: 61 Year
  Sex: Female

DRUGS (2)
  1. TAXOL [Suspect]
     Indication: BREAST CANCER
     Dosage: 143 MG Q7D IV, LAST 3 WEEKS
     Route: 042
  2. HERCEPTIN [Suspect]
     Indication: BREAST CANCER
     Dosage: 143MG Q7D IV LAST 3 WEEKS
     Route: 042

REACTIONS (4)
  - HYPOXIA [None]
  - LUNG INFILTRATION [None]
  - PULMONARY TOXICITY [None]
  - PYREXIA [None]
